FAERS Safety Report 17245736 (Version 2)
Quarter: 2020Q1

REPORT INFORMATION
  Report Type: Spontaneous
  Country: US (occurrence: US)
  Receive Date: 20200108
  Receipt Date: 20200124
  Transmission Date: 20200409
  Serious: Yes (Other)
  Sender: FDA-Public Use
  Company Number: US-OREXO US, INC.-ORE202001-000001

PATIENT
  Sex: Female

DRUGS (5)
  1. ZUBSOLV [Suspect]
     Active Substance: BUPRENORPHINE HYDROCHLORIDE\NALOXONE HYDROCHLORIDE
     Indication: PAIN
     Dosage: TWICE DAILY AND TAKE 2 EXTRA A DAY IF NEEDED
     Route: 060
     Dates: start: 20191219, end: 201912
  2. STEROID [Concomitant]
     Active Substance: UNSPECIFIED INGREDIENT
  3. XANAX [Concomitant]
     Active Substance: ALPRAZOLAM
     Dosage: 2 MG AT NIGHT AS NEEDED
  4. HYDROCORTISONE. [Concomitant]
     Active Substance: HYDROCORTISONE
     Indication: ADRENAL INSUFFICIENCY
     Dosage: 60 MG PER DAY
  5. HYDROCORTISONE. [Concomitant]
     Active Substance: HYDROCORTISONE
     Dosage: 30 MG PER DAY

REACTIONS (5)
  - Product use in unapproved indication [Unknown]
  - Migraine [Unknown]
  - Back pain [Recovering/Resolving]
  - Insomnia [Not Recovered/Not Resolved]
  - Product prescribing error [Unknown]
